FAERS Safety Report 9993000 (Version 1)
Quarter: 2014Q1

REPORT INFORMATION
  Report Type: Report from Study
  Country: US (occurrence: US)
  Receive Date: 20140310
  Receipt Date: 20140310
  Transmission Date: 20141002
  Serious: No
  Sender: FDA-Public Use
  Company Number: US-ABBVIE-13P-163-1174383-00

PATIENT
  Age: 34 Year
  Sex: Female
  Weight: 52.21 kg

DRUGS (3)
  1. LUPRON DEPOT [Suspect]
     Indication: ENDOMETRIOSIS
     Route: 030
     Dates: start: 201307
  2. VENTOLIN [Concomitant]
     Indication: ASTHMA
     Dosage: PRN
  3. ALLEGRA D [Concomitant]
     Indication: PRODUCT USED FOR UNKNOWN INDICATION
     Route: 048

REACTIONS (3)
  - Muscle spasms [Not Recovered/Not Resolved]
  - Menorrhagia [Recovered/Resolved]
  - Metrorrhagia [Recovered/Resolved]
